FAERS Safety Report 5068537-2 (Version None)
Quarter: 2006Q3

REPORT INFORMATION
  Report Type: 
  Country: None (occurrence: None)
  Receive Date: 20060802
  Receipt Date: 20051114
  Transmission Date: 20061208
  Serious: No
  Sender: FDA-Public Use
  Company Number: US-BRISTOL-MYERS SQUIBB COMPANY-13178983

PATIENT
  Age: 71 Year
  Sex: Male
  Weight: 118 kg

DRUGS (2)
  1. COUMADIN [Suspect]
     Indication: ATRIAL FIBRILLATION
     Dosage: 4 MG TABLETS ONCE DAILY, EVERY OTHER DAY, ALTERNATING WITH 5 MG TABLETS ONCE DAILY, EVERY OTHER DAY
  2. COUMADIN [Suspect]
     Indication: ATRIAL FIBRILLATION

REACTIONS (1)
  - POLLAKIURIA [None]
